FAERS Safety Report 16109714 (Version 1)
Quarter: 2019Q1

REPORT INFORMATION
  Report Type: Spontaneous
  Country: GB (occurrence: GB)
  Receive Date: 20190325
  Receipt Date: 20190325
  Transmission Date: 20190418
  Serious: Yes (Disabling, Other)
  Sender: FDA-Public Use
  Company Number: GB-TEVA-2019-GB-1027467

PATIENT
  Age: 74 Year
  Sex: Female
  Weight: 95.25 kg

DRUGS (6)
  1. MAGNESIUM GLYCINATE [Concomitant]
     Active Substance: MAGNESIUM GLYCINATE
  2. PREDNISOLONE. [Suspect]
     Active Substance: PREDNISOLONE
     Route: 065
  3. BISOPROLOL FUMARATE. [Concomitant]
     Active Substance: BISOPROLOL FUMARATE
  4. VITAMIN B12 [Concomitant]
     Active Substance: CYANOCOBALAMIN
  5. TIMODINE [Concomitant]
     Indication: FUNGAL INFECTION
     Dosage: 3 DOSAGE FORMS DAILY;
     Route: 061
     Dates: start: 20190103
  6. NATURE-THROID [Concomitant]
     Active Substance: THYROID, PORCINE

REACTIONS (3)
  - Haematemesis [Unknown]
  - Blood pressure increased [Unknown]
  - Atrial fibrillation [Unknown]
